FAERS Safety Report 6907076-8 (Version None)
Quarter: 2010Q3

REPORT INFORMATION
  Report Type: 
  Country: None (occurrence: None)
  Receive Date: 20100804
  Receipt Date: 20080912
  Transmission Date: 20110219
  Serious: Yes (Other)
  Sender: FDA-Public Use
  Company Number: US-PFIZER INC-2008019321

PATIENT
  Sex: Female

DRUGS (1)
  1. NARDIL [Suspect]
     Indication: DEPRESSION
     Dates: start: 20071227, end: 20080907

REACTIONS (7)
  - BLOOD URINE PRESENT [None]
  - CHEST PAIN [None]
  - DIZZINESS [None]
  - INSOMNIA [None]
  - MUSCULAR WEAKNESS [None]
  - RENAL CANCER [None]
  - WITHDRAWAL SYNDROME [None]
